FAERS Safety Report 7020426-X (Version None)
Quarter: 2010Q3

REPORT INFORMATION
  Report Type: 
  Country: None (occurrence: None)
  Receive Date: 20100929
  Receipt Date: 20100921
  Transmission Date: 20110219
  Serious: Yes (Death, Hospitalization)
  Sender: FDA-Public Use
  Company Number: JP-JNJFOC-20100908192

PATIENT
  Age: 64 Year
  Sex: Male

DRUGS (2)
  1. CRAVIT [Suspect]
     Indication: PRODUCT USED FOR UNKNOWN INDICATION
     Dosage: FOR 2 WEEKS
     Route: 065
  2. CIPROFLOXACIN HYDROCHLORIDE [Suspect]
     Indication: PRODUCT USED FOR UNKNOWN INDICATION
     Route: 065

REACTIONS (4)
  - RENAL IMPAIRMENT [None]
  - RHABDOMYOLYSIS [None]
  - SEPSIS [None]
  - WHITE BLOOD CELL COUNT DECREASED [None]
